FAERS Safety Report 5557261-5 (Version None)
Quarter: 2007Q4

REPORT INFORMATION
  Report Type: 
  Country: None (occurrence: None)
  Receive Date: 20071214
  Receipt Date: 20071002
  Transmission Date: 20080405
  Serious: No
  Sender: FDA-Public Use
  Company Number: US-AMGEN-KDL243356

PATIENT
  Sex: Female

DRUGS (2)
  1. ENBREL [Suspect]
     Indication: RHEUMATOID ARTHRITIS
     Dates: start: 20000101
  2. ATACAND [Concomitant]

REACTIONS (4)
  - DRUG ERUPTION [None]
  - INSOMNIA [None]
  - PYREXIA [None]
  - RASH PRURITIC [None]
